FAERS Safety Report 8246162-X (Version None)
Quarter: 2012Q1

REPORT INFORMATION
  Report Type: 
  Country: None (occurrence: None)
  Receive Date: 20120330
  Receipt Date: 20120321
  Transmission Date: 20120608
  Serious: Yes (Hospitalization)
  Sender: FDA-Public Use
  Company Number: BR-US-EMD SERONO, INC.-7121587

PATIENT
  Sex: Female

DRUGS (5)
  1. REBIF [Suspect]
     Indication: RELAPSING-REMITTING MULTIPLE SCLEROSIS
     Dates: start: 20020827
  2. LITHIUM CARBONATE [Concomitant]
     Indication: PRODUCT USED FOR UNKNOWN INDICATION
  3. UNKNOWN [Concomitant]
     Indication: NASAL CONGESTION
     Route: 045
  4. LEXOTAN [Concomitant]
     Indication: PRODUCT USED FOR UNKNOWN INDICATION
     Dosage: 3 PILLS
  5. CLONAZEPAM [Concomitant]
     Indication: PRODUCT USED FOR UNKNOWN INDICATION

REACTIONS (5)
  - ARRHYTHMIA [None]
  - MULTIPLE SCLEROSIS RELAPSE [None]
  - CONDITION AGGRAVATED [None]
  - HYPOAESTHESIA [None]
  - PARAESTHESIA [None]
